FAERS Safety Report 6594014-3 (Version None)
Quarter: 2010Q1

REPORT INFORMATION
  Report Type: 
  Country: None (occurrence: None)
  Receive Date: 20100212
  Receipt Date: 20100204
  Transmission Date: 20100710
  Serious: Yes (Hospitalization, Congenital Anomaly)
  Sender: FDA-Public Use
  Company Number: 2008JP005635

PATIENT
  Age: 35 Year
  Sex: Female
  Weight: 60 kg

DRUGS (18)
  1. TACROLIMUS [Suspect]
     Indication: LUPUS NEPHRITIS
     Dosage: 2 MG, /D, ORAL; 3 MG, /D, ORAL
     Route: 048
     Dates: start: 20070419, end: 20070530
  2. TACROLIMUS [Suspect]
     Indication: LUPUS NEPHRITIS
     Dosage: 2 MG, /D, ORAL; 3 MG, /D, ORAL
     Route: 048
     Dates: start: 20070531
  3. PREDNISOLONE [Suspect]
     Indication: LUPUS NEPHRITIS
     Dosage: 20 MG, QOD, ORAL; 30  MG, /D, ORAL; 25  MG, /D, ORAL
     Route: 048
     Dates: end: 20070816
  4. PREDNISOLONE [Suspect]
     Indication: LUPUS NEPHRITIS
     Dosage: 20 MG, QOD, ORAL; 30  MG, /D, ORAL; 25  MG, /D, ORAL
     Route: 048
     Dates: start: 20070817, end: 20071206
  5. PREDNISOLONE [Suspect]
     Indication: LUPUS NEPHRITIS
     Dosage: 20 MG, QOD, ORAL; 30  MG, /D, ORAL; 25  MG, /D, ORAL
     Route: 048
     Dates: start: 20071207, end: 20080104
  6. PREDNISOLONE [Suspect]
     Indication: LUPUS NEPHRITIS
     Dosage: 20 MG, QOD, ORAL; 30  MG, /D, ORAL; 25  MG, /D, ORAL
     Route: 048
     Dates: start: 20080105, end: 20080508
  7. PREDNISOLONE [Suspect]
     Indication: LUPUS NEPHRITIS
     Dosage: 20 MG, QOD, ORAL; 30  MG, /D, ORAL; 25  MG, /D, ORAL
     Route: 048
     Dates: start: 20080509, end: 20080711
  8. PREDNISOLONE [Suspect]
     Indication: LUPUS NEPHRITIS
     Dosage: 20 MG, QOD, ORAL; 30  MG, /D, ORAL; 25  MG, /D, ORAL
     Route: 048
     Dates: start: 20080712, end: 20090212
  9. PREDNISOLONE [Suspect]
     Indication: LUPUS NEPHRITIS
     Dosage: 20 MG, QOD, ORAL; 30  MG, /D, ORAL; 25  MG, /D, ORAL
     Route: 048
     Dates: start: 20090213
  10. ONE-ALPHA (ALFACALCIDOL) PER ORAL NOS [Suspect]
     Dosage: 0.5 UG, /D, ORAL
     Route: 048
  11. NU-LOTAN (LOSARTAN POTASSIUM) PER ORAL NOS [Suspect]
     Dosage: 25 MG, /D,  ORAL; 50 MG, /D,  ORAL
     Route: 048
     Dates: end: 20080304
  12. NU-LOTAN (LOSARTAN POTASSIUM) PER ORAL NOS [Suspect]
     Dosage: 25 MG, /D,  ORAL; 50 MG, /D,  ORAL
     Route: 048
     Dates: start: 20080305
  13. TAGAMET [Suspect]
     Dosage: 200 MG, /D, ORAL
     Route: 048
     Dates: end: 20080309
  14. LIPITOR [Suspect]
     Dosage: 5 MG, /D, ORAL
     Route: 048
     Dates: end: 20080309
  15. ISCOTIN (ISONIAZID) PER ORAL NOS [Suspect]
     Dosage: 300 MG, /D, ORAL
     Route: 048
     Dates: start: 20080229, end: 20080711
  16. REMICADE [Suspect]
     Dosage: 200 MG, /D, ORAL
     Route: 048
     Dates: start: 20080229
  17. REMICADE [Suspect]
     Dosage: 200 MG, /D, ORAL
     Route: 048
     Dates: start: 20080314
  18. REMICADE [Suspect]
     Dosage: 200 MG, /D, ORAL
     Route: 048
     Dates: start: 20080410

REACTIONS (11)
  - ABORTION MISSED [None]
  - BLOOD PRESSURE INCREASED [None]
  - CONDITION AGGRAVATED [None]
  - CONGENITAL ANOMALY [None]
  - DRUG EXPOSURE DURING PREGNANCY [None]
  - GLUCOSE URINE PRESENT [None]
  - LUPUS NEPHRITIS [None]
  - PLATELET COUNT DECREASED [None]
  - RENAL IMPAIRMENT [None]
  - SYSTEMIC LUPUS ERYTHEMATOSUS [None]
  - WHITE BLOOD CELL COUNT DECREASED [None]
